FAERS Safety Report 7832351-2 (Version None)
Quarter: 2011Q4

REPORT INFORMATION
  Report Type: 
  Country: None (occurrence: None)
  Receive Date: 20111022
  Receipt Date: 20111005
  Transmission Date: 20120403
  Serious: Yes (Hospitalization)
  Sender: FDA-Public Use
  Company Number: US-BAYER-2011-055316

PATIENT
  Age: 40 Year
  Sex: Female
  Weight: 108.39 kg

DRUGS (24)
  1. METOPROLOL TARTRATE [Concomitant]
     Dosage: 50 MG, QD
     Dates: start: 20080613, end: 20100217
  2. DICLOFENAC POTASSIUM [Concomitant]
     Dosage: 75 MG, UNK
     Dates: start: 20090715, end: 20091111
  3. FLEXERIL [Concomitant]
     Dosage: 10 MG, UNK
     Dates: end: 20091101
  4. NAPROSYN [Concomitant]
     Dosage: UNK
     Dates: end: 20091101
  5. BLOOD TRANSFUSION, AUXILIARY PRODUCTS [Concomitant]
     Indication: ANAEMIA
  6. FLUOCINONIDE [Concomitant]
     Dosage: 0.05 UNK, UNK
     Dates: start: 20020119, end: 20090916
  7. VICODIN [Concomitant]
     Dosage: UNK UNK, PRN
     Dates: start: 20091204
  8. LISINOPRIL [Concomitant]
     Dosage: 40 MG, UNK
     Dates: start: 20090701, end: 20090924
  9. BISOPROLOL FUMARATE AND HYDROCHLOROTHIAZIDE [Concomitant]
     Dosage: UNK
     Dates: start: 20090805, end: 20090909
  10. KENALOG [Concomitant]
     Dosage: UNK
     Dates: start: 20090826, end: 20091009
  11. DROSPIRENONE AND ETHINYL ESTRADIOL [Suspect]
     Dosage: UNK
     Dates: start: 20090101
  12. OMEPRAZOLE [Concomitant]
     Dosage: 20 MG, QD
     Dates: start: 20080613, end: 20091012
  13. LIDODERM [Concomitant]
     Dosage: UNK
     Dates: start: 20090701
  14. NAPROXEN [Concomitant]
  15. DOXYCYCLINE [Concomitant]
     Dosage: 100 MG, BID
     Dates: start: 20011206, end: 20091009
  16. IBUPROFEN [Concomitant]
     Dosage: 800 MG, UNK
     Dates: start: 20070906, end: 20091118
  17. MARCAINE [Concomitant]
     Dosage: UNK
     Dates: start: 20090826, end: 20091009
  18. PREDNISONE [Concomitant]
     Indication: ARTHRALGIA
  19. RANITIDINE [Concomitant]
     Dosage: 150 MG, BID
     Dates: start: 20011022, end: 20091022
  20. HYDROCHLOROTHIAZIDE [Concomitant]
     Dosage: 25 MG, QD
     Dates: start: 20070906, end: 20091118
  21. GLUCOSAMINE W/METHYLSULFONYLMETHANE [Concomitant]
     Dosage: UNK
     Dates: start: 20070101
  22. CYCLOBENZAPRINE [Concomitant]
  23. CALCIUM WITH VITAMIN D [Concomitant]
     Indication: BONE DISORDER
     Dosage: UNK UNK, TID
     Dates: start: 20090115, end: 20091001
  24. HYDROXYZINE [Concomitant]
     Dosage: 10 MG, PRN
     Route: 048
     Dates: start: 20010712, end: 20100301

REACTIONS (4)
  - PAIN [None]
  - DEEP VEIN THROMBOSIS [None]
  - INJURY [None]
  - PULMONARY EMBOLISM [None]
